FAERS Safety Report 6848100-0 (Version None)
Quarter: 2010Q3

REPORT INFORMATION
  Report Type: 
  Country: None (occurrence: None)
  Receive Date: 20100716
  Receipt Date: 20100709
  Transmission Date: 20110219
  Serious: Yes (Other)
  Sender: FDA-Public Use
  Company Number: A0865516A

PATIENT
  Age: 68 Year
  Sex: Male

DRUGS (21)
  1. ADVAIR DISKUS 100/50 [Suspect]
     Indication: CHRONIC OBSTRUCTIVE PULMONARY DISEASE
     Dosage: 1PUFF PER DAY
     Route: 055
     Dates: start: 20080101, end: 20100602
  2. DILAUDID [Concomitant]
  3. EFFEXOR [Concomitant]
  4. METOPROLOL [Concomitant]
  5. LISINOPRIL [Concomitant]
  6. LIPITOR [Concomitant]
  7. TOPAMAX [Concomitant]
  8. PROVENTIL [Concomitant]
  9. FOSAMAX [Concomitant]
  10. GLYCOLAX [Concomitant]
  11. SIMVASTATIN [Concomitant]
  12. TRAZODONE HYDROCHLORIDE [Concomitant]
  13. FLONASE [Concomitant]
  14. BI-PAP [Concomitant]
  15. CARBATROL [Concomitant]
     Route: 048
  16. MULTI-VITAMIN [Concomitant]
  17. CALCIUM SUPPLEMENT [Concomitant]
  18. DULCOLAX [Concomitant]
  19. PYRIDOXINE HCL [Concomitant]
  20. BUPIVACAINE HCL [Concomitant]
  21. CLONIDINE [Concomitant]

REACTIONS (11)
  - ABDOMINAL DISCOMFORT [None]
  - ADVERSE EVENT [None]
  - DECREASED APPETITE [None]
  - DEPRESSION [None]
  - FALL [None]
  - FEELING ABNORMAL [None]
  - FRACTURE [None]
  - GASTROINTESTINAL DISORDER [None]
  - HUMERUS FRACTURE [None]
  - OSTEOPOROSIS [None]
  - TREATMENT NONCOMPLIANCE [None]
